FAERS Safety Report 7576968-1 (Version None)
Quarter: 2011Q2

REPORT INFORMATION
  Report Type: 
  Country: None (occurrence: None)
  Receive Date: 20110628
  Receipt Date: 20090930
  Transmission Date: 20111010
  Serious: Yes (Other)
  Sender: FDA-Public Use
  Company Number: US-BAYER-200934368NA

PATIENT
  Age: 73 Year
  Sex: Male
  Weight: 90 kg

DRUGS (15)
  1. ZOCOR [Concomitant]
  2. ACETYLSALICYLIC ACID SRT [Concomitant]
  3. VECURONIUM BROMIDE [Concomitant]
     Dosage: UNK
     Route: 042
     Dates: start: 20050407, end: 20050407
  4. DOBUTREX [Concomitant]
     Dosage: UNK
     Route: 042
     Dates: start: 20050407, end: 20050407
  5. TRASYLOL [Suspect]
     Indication: PRODUCT USED FOR UNKNOWN INDICATION
     Dosage: 200 ML PUMP PRIME
     Route: 042
     Dates: start: 20050407, end: 20050407
  6. VERSED [Concomitant]
     Dosage: UNK
     Route: 042
     Dates: start: 20050407, end: 20050407
  7. PAPAVERINE [Concomitant]
     Dosage: UNK
     Route: 042
     Dates: start: 20050407, end: 20050407
  8. DIPRIVAN [Concomitant]
     Dosage: UNK
     Route: 042
     Dates: start: 20050407, end: 20050407
  9. INSULIN [Concomitant]
  10. FENTANYL [Concomitant]
     Dosage: UNK
     Route: 042
     Dates: start: 20050407, end: 20050407
  11. TRASYLOL [Suspect]
     Dosage: 200 ML OF LOADING DOSE
     Route: 042
     Dates: start: 20050407, end: 20050407
  12. LISINOPRIL [Concomitant]
  13. TRASYLOL [Suspect]
     Dosage: 50ML/HR INFUSION
     Route: 042
     Dates: start: 20050407, end: 20050407
  14. PROTAMINE SULFATE [Concomitant]
     Dosage: UNK
     Route: 042
     Dates: start: 20050407, end: 20050407
  15. PHENYLEPHRINE HCL [Concomitant]
     Dosage: UNK
     Route: 042
     Dates: start: 20050407, end: 20050407

REACTIONS (12)
  - UNEVALUABLE EVENT [None]
  - PAIN [None]
  - RENAL IMPAIRMENT [None]
  - RENAL FAILURE [None]
  - STRESS [None]
  - FEAR [None]
  - RENAL INJURY [None]
  - EMOTIONAL DISTRESS [None]
  - CARDIAC DISORDER [None]
  - ANAEMIA [None]
  - INJURY [None]
  - ANXIETY [None]
